FAERS Safety Report 5209702-0 (Version None)
Quarter: 2006Q4

REPORT INFORMATION
  Report Type: 
  Country: None (occurrence: None)
  Receive Date: 20061117
  Receipt Date: 20060914
  Transmission Date: 20070319
  Serious: Yes (Other)
  Sender: FDA-Public Use
  Company Number: 147651USA

PATIENT
  Sex: Female
  Weight: 85.2762 kg

DRUGS (8)
  1. SALBUTAMOL SULFATE INHALATION, 0.09 MG(SALBUTAMOL) [Suspect]
     Indication: BRONCHOSPASM
     Dosage: ORAL
     Route: 048
  2. LEVOTHYROXINE SODIUM [Concomitant]
  3. ZOLMITRIPTAN [Concomitant]
  4. TOPIRAMATE [Concomitant]
  5. SERETIDE [Concomitant]
  6. ETODOLAC [Concomitant]
  7. FLUTICASONE PROPIONATE [Concomitant]
  8. ENDAL [Concomitant]

REACTIONS (4)
  - BLISTER [None]
  - PHARYNGEAL OEDEMA [None]
  - RASH [None]
  - SWELLING FACE [None]
